FAERS Safety Report 9597575 (Version 1)
Quarter: 2013Q4

REPORT INFORMATION
  Report Type: Spontaneous
  Country: US (occurrence: US)
  Receive Date: 20131004
  Receipt Date: 20131004
  Transmission Date: 20140711
  Serious: No
  Sender: FDA-Public Use
  Company Number: US-AMGEN-USASP2013019819

PATIENT
  Age: 70 Year
  Sex: Female

DRUGS (12)
  1. ENBREL [Suspect]
     Indication: RHEUMATOID ARTHRITIS
     Dosage: 50 MG, QWK
     Route: 058
  2. NAPROSYN                           /00256201/ [Concomitant]
     Dosage: 250 MG, UNK
  3. LOTENSIN                           /00498401/ [Concomitant]
     Dosage: 10 MG, UNK
  4. METFORMIN [Concomitant]
     Dosage: 500 MG, UNK
  5. BENAZEPRIL [Concomitant]
     Dosage: 10 MG, UNK
  6. SIMVASTATIN [Concomitant]
     Dosage: 5 MG, UNK
  7. VITAMIN D3 [Concomitant]
     Dosage: 1000 UNIT, UNK
  8. MSM [Concomitant]
     Dosage: 1000 MG, UNK
  9. FOLIC ACID [Concomitant]
     Dosage: UNK
  10. OMEGA 3                            /01334101/ [Concomitant]
     Dosage: 1000 MG, UNK
  11. VITAMIN B 6 [Concomitant]
     Dosage: 50 MG, UNK
  12. BIOTIN [Concomitant]
     Dosage: 5 MG, UNK

REACTIONS (2)
  - Muscle spasms [Unknown]
  - Dehydration [Unknown]
